FAERS Safety Report 20635907 (Version 2)
Quarter: 2023Q2

REPORT INFORMATION
  Report Type: Spontaneous
  Country: DE (occurrence: DE)
  Receive Date: 20220325
  Receipt Date: 20230516
  Transmission Date: 20230721
  Serious: Yes (Hospitalization, Other)
  Sender: FDA-Public Use
  Company Number: DE-NOVARTISPH-NVSC2022DE064489

PATIENT
  Age: 56 Year
  Sex: Male

DRUGS (10)
  1. METHOTREXATE SODIUM [Suspect]
     Active Substance: METHOTREXATE SODIUM
     Indication: Product used for unknown indication
     Dosage: 20 MG, QW (20 MILLIGRAM, QWK)
     Route: 065
  2. ABATACEPT [Suspect]
     Active Substance: ABATACEPT
     Indication: Rheumatoid arthritis
     Dosage: 125 MG, QW
     Route: 058
  3. ORENCIA [Suspect]
     Active Substance: ABATACEPT
     Indication: Rheumatoid arthritis
     Dosage: 125 MG, QW (125 MILLIGRAM, QWK)
     Route: 058
     Dates: end: 20211117
  4. ORENCIA [Suspect]
     Active Substance: ABATACEPT
     Dosage: UNK
     Route: 065
  5. VENLAFAXINE [Concomitant]
     Active Substance: VENLAFAXINE HYDROCHLORIDE
     Indication: Product used for unknown indication
     Dosage: 150 MG, QD (75 MG, 0.5 DAY)
     Route: 065
  6. FOLIC ACID [Concomitant]
     Active Substance: FOLIC ACID
     Indication: Product used for unknown indication
     Dosage: 5 MG, QW (5 MG, WEEKLY)
     Route: 065
  7. CHOLECALCIFEROL [Concomitant]
     Active Substance: CHOLECALCIFEROL
     Indication: Product used for unknown indication
     Dosage: 40000 IU, QW (20000 IU, 2X/WEEK)
     Route: 065
  8. GLYCOPYRRONIUM\INDACATEROL [Concomitant]
     Active Substance: GLYCOPYRRONIUM\INDACATEROL
     Indication: Product used for unknown indication
     Dosage: UNK UNK, QD (1X/DAY)
     Route: 065
  9. NEVIRAPINE [Concomitant]
     Active Substance: NEVIRAPINE
     Indication: Product used for unknown indication
     Dosage: 400 MG, QD (400 MG 1X/DAY)
     Route: 065
  10. MIRTAZAPINE [Concomitant]
     Active Substance: MIRTAZAPINE
     Indication: Product used for unknown indication
     Dosage: 15 MG, QD (15 MG, 1X/DAY)
     Route: 065

REACTIONS (11)
  - Rheumatoid arthritis [Recovered/Resolved]
  - Lung disorder [Unknown]
  - Herpes simplex [Recovered/Resolved]
  - Conjunctival haemorrhage [Not Recovered/Not Resolved]
  - Pulmonary fibrosis [Unknown]
  - Tinea pedis [Unknown]
  - Aphthous ulcer [Recovered/Resolved]
  - Constipation [Not Recovered/Not Resolved]
  - Weight increased [Not Recovered/Not Resolved]
  - Chronic obstructive pulmonary disease [Unknown]
  - Aphthous ulcer [Unknown]

NARRATIVE: CASE EVENT DATE: 20210520
